FAERS Safety Report 8821196 (Version 1)
Quarter: 2012Q4

REPORT INFORMATION
  Report Type: 
  Country: US (occurrence: US)
  Receive Date: 20121002
  Receipt Date: 20121002
  Transmission Date: 20130627
  Serious: Yes (Death)
  Sender: FDA-Public Use
  Company Number: US-ROCHE-1130797

PATIENT
  Sex: Female

DRUGS (5)
  1. RITUXAN [Suspect]
     Indication: FACTOR VIII DEFICIENCY
     Route: 065
  2. RITUXAN [Suspect]
     Indication: OFF LABEL USE
     Route: 065
     Dates: start: 20070717
  3. RITUXAN [Suspect]
     Route: 065
     Dates: start: 20070724
  4. RITUXAN [Suspect]
     Route: 065
     Dates: start: 20070731
  5. RITUXAN [Suspect]
     Route: 065
     Dates: start: 20070808

REACTIONS (1)
  - Death [Fatal]
